FAERS Safety Report 10048148 (Version 1)
Quarter: 2014Q1

REPORT INFORMATION
  Report Type: Spontaneous
  Country: US (occurrence: None)
  Receive Date: 20140306
  Receipt Date: 20140306
  Transmission Date: 20141002
  Serious: Yes (Hospitalization)
  Sender: FDA-Public Use
  Company Number: 163-21880-13094491

PATIENT
  Age: 68 Year
  Sex: Male
  Weight: 108.86 kg

DRUGS (10)
  1. REVLIMID [Suspect]
     Indication: PLASMA CELL MYELOMA
     Route: 048
     Dates: start: 20130805
  2. COUMADIN (WARFARIN SODIUM) [Concomitant]
  3. CARDIZEM (DILTIAZEM HYDROCHLORIDE) [Concomitant]
  4. LOVASTATIN (LOVASTATIN) [Concomitant]
  5. LEVOTHYROXINE (LEVOTHYROXINE) [Concomitant]
  6. GABAPENTIN (GABAPENTIN) [Concomitant]
  7. OXYCODONE (OXYCODONE) [Concomitant]
  8. MORPHINE (MORPHINE) [Concomitant]
  9. ACYCLOVIR (ACICLOVIR) [Concomitant]
  10. DEXAMETHASONE (DEXAMETHASONE) [Concomitant]

REACTIONS (2)
  - Pulmonary thrombosis [None]
  - Pneumonia [None]
